FAERS Safety Report 5255731-0 (Version None)
Quarter: 2007Q1

REPORT INFORMATION
  Report Type: 
  Country: None (occurrence: None)
  Receive Date: 20070305
  Receipt Date: 20070221
  Transmission Date: 20070707
  Serious: Yes (Other)
  Sender: FDA-Public Use
  Company Number: US-PFIZER INC-2007014471

PATIENT
  Sex: Female
  Weight: 67.6 kg

DRUGS (5)
  1. XALATAN [Suspect]
     Indication: INTRAOCULAR PRESSURE INCREASED
  2. LIPITOR [Suspect]
     Indication: BLOOD CHOLESTEROL INCREASED
  3. CHANTIX [Suspect]
     Indication: EX-SMOKER
  4. DITROPAN XL [Concomitant]
  5. ASPIRIN [Concomitant]

REACTIONS (5)
  - BLOOD CHOLESTEROL INCREASED [None]
  - DEHYDRATION [None]
  - NAUSEA [None]
  - WEIGHT FLUCTUATION [None]
  - WEIGHT INCREASED [None]
